FAERS Safety Report 23769117 (Version 2)
Quarter: 2024Q2

REPORT INFORMATION
  Report Type: Spontaneous
  Country: US (occurrence: US)
  Receive Date: 20240422
  Receipt Date: 20240426
  Transmission Date: 20240716
  Serious: No
  Sender: FDA-Public Use
  Company Number: IE-VERTEX PHARMACEUTICALS-2024-006877

PATIENT
  Age: 44 Year
  Sex: Male

DRUGS (8)
  1. TRIKAFTA [Suspect]
     Active Substance: ELEXACAFTOR\IVACAFTOR\TEZACAFTOR
     Indication: Cystic fibrosis
     Dosage: UNK FREQ
     Route: 048
  2. TACROLIMUS [Concomitant]
     Active Substance: TACROLIMUS
     Indication: Immunosuppression
     Dosage: 1.5 MILLIGRAM, BID, AT BASELINE
  3. TACROLIMUS [Concomitant]
     Active Substance: TACROLIMUS
     Dosage: NO DOSE ON DAY1-6, 0.5 MG IN EVENING ON DAY 7, 0.5 MG, BID ON DAY8, 0.5 MG AM AND 1.5 MG PM ON DAY 9
  4. TACROLIMUS [Concomitant]
     Active Substance: TACROLIMUS
     Dosage: 1.5 MILLIGRAM, BID, DAY 10-12
  5. PREDNISONE [Concomitant]
     Active Substance: PREDNISONE
     Indication: Immunosuppression
  6. MYCOPHENOLATE MOFETIL [Concomitant]
     Active Substance: MYCOPHENOLATE MOFETIL
     Indication: Immunosuppression
  7. FLUCONAZOLE [Concomitant]
     Active Substance: FLUCONAZOLE
  8. LOPERAMIDE [Concomitant]
     Active Substance: LOPERAMIDE

REACTIONS (1)
  - COVID-19 [Unknown]
